FAERS Safety Report 21961671 (Version 1)
Quarter: 2023Q1

REPORT INFORMATION
  Report Type: Spontaneous
  Country: US (occurrence: None)
  Receive Date: 20230204
  Receipt Date: 20230204
  Transmission Date: 20230418
  Serious: Yes (unspecified)
  Sender: FDA-Public Use
  Company Number: None

PATIENT
  Age: 43 Year
  Sex: Female
  Weight: 77.4 kg

DRUGS (1)
  1. AMBI SKINCARE NORMAL SKIN FADE [Suspect]
     Active Substance: HYDROQUINONE\OCTINOXATE

REACTIONS (2)
  - Skin irritation [None]
  - Skin discolouration [None]

NARRATIVE: CASE EVENT DATE: 20220501
